FAERS Safety Report 24292790 (Version 1)
Quarter: 2024Q3

REPORT INFORMATION
  Report Type: Spontaneous
  Country: US (occurrence: None)
  Receive Date: 20240906
  Receipt Date: 20240906
  Transmission Date: 20241016
  Serious: No
  Sender: DOMPE FARMACEUTICI
  Company Number: US-FARMAPROD-202308-202310-3115

PATIENT
  Sex: Female

DRUGS (8)
  1. OXERVATE [Suspect]
     Active Substance: CENEGERMIN-BKBJ
     Indication: Neurotrophic keratopathy
     Route: 047
     Dates: start: 20231012
  2. CLONAZEPAM [Concomitant]
     Active Substance: CLONAZEPAM
  3. MELATONIN [Concomitant]
     Active Substance: MELATONIN
  4. METAMUCIL FREE [Concomitant]
     Dosage: 3 GRAM / 7 GRAM
  5. MAGNESIUM CITRATE [Concomitant]
     Active Substance: MAGNESIUM CITRATE
  6. PROBIOTIC BLEND [Concomitant]
     Dosage: 2 BILLION CELL-50
  7. DEXILANT [Concomitant]
     Active Substance: DEXLANSOPRAZOLE
     Dosage: BIPHASIC
  8. THERATEARS [Concomitant]
     Active Substance: CARBOXYMETHYLCELLULOSE SODIUM

REACTIONS (1)
  - Eyelid pain [Unknown]
